FAERS Safety Report 7874608-5 (Version None)
Quarter: 2011Q3

REPORT INFORMATION
  Report Type: 
  Country: None (occurrence: None)
  Receive Date: 20110928
  Receipt Date: 20110928
  Transmission Date: 20111222
  Serious: Yes (Other)
  Sender: FDA-Public Use
  Company Number: 2011SCPR003115

PATIENT
  Sex: Male

DRUGS (1)
  1. CLONAZEPAM [Suspect]
     Indication: ANXIETY
     Dosage: 3 PILLS A DAY, ORAL
     Route: 048
     Dates: start: 20110717

REACTIONS (2)
  - NERVOUSNESS [None]
  - HALLUCINATION [None]
